FAERS Safety Report 22259882 (Version 1)
Quarter: 2023Q2

REPORT INFORMATION
  Report Type: Spontaneous
  Country: US (occurrence: US)
  Receive Date: 20230427
  Receipt Date: 20230427
  Transmission Date: 20230721
  Serious: Yes (Other)
  Sender: FDA-Public Use
  Company Number: US-MYLANLABS-2023M1044630

PATIENT
  Age: 22 Year
  Sex: Male

DRUGS (2)
  1. BACLOFEN [Suspect]
     Active Substance: BACLOFEN
     Indication: Myokymia
     Dosage: 60 MILLIGRAM, QD, FOR THE MINIMAL DURATION OF 4 WEEKS
     Route: 065
  2. GABAPENTIN [Suspect]
     Active Substance: GABAPENTIN
     Indication: Myokymia
     Dosage: 3600 MILLIGRAM, QD, FOR THE MINIMAL DURATION OF 4 WEEKS
     Route: 065

REACTIONS (1)
  - Drug ineffective [Unknown]
